FAERS Safety Report 11564852 (Version 1)
Quarter: 2015Q3

REPORT INFORMATION
  Report Type: Spontaneous
  Country: CA (occurrence: CA)
  Receive Date: 20150928
  Receipt Date: 20150928
  Transmission Date: 20151125
  Serious: Yes (Hospitalization)
  Sender: FDA-Public Use
  Company Number: CA-ACTELION-A-NJ2015-124351

PATIENT
  Age: 69 Year
  Sex: Female

DRUGS (16)
  1. VITAMIN D [Concomitant]
     Active Substance: CHOLECALCIFEROL
  2. SYNTHROID [Concomitant]
     Active Substance: LEVOTHYROXINE SODIUM
  3. RABEPRAZOLE [Concomitant]
     Active Substance: RABEPRAZOLE
  4. ASPIRIN. [Concomitant]
     Active Substance: ASPIRIN
  5. WARFARIN [Concomitant]
     Active Substance: WARFARIN
  6. TRACLEER [Suspect]
     Active Substance: BOSENTAN
     Indication: PULMONARY ARTERIAL HYPERTENSION
     Route: 048
  7. FUROSEMIDE. [Concomitant]
     Active Substance: FUROSEMIDE
  8. URSO [Concomitant]
     Active Substance: URSODIOL
  9. CARIPUL [Suspect]
     Active Substance: EPOPROSTENOL
     Indication: PULMONARY ARTERIAL HYPERTENSION
     Dosage: 46 NG/KG, PER MIN
     Route: 042
     Dates: start: 20141014
  10. FERROUS GLUCONATE [Concomitant]
     Active Substance: FERROUS GLUCONATE
  11. DIDROCAL [Concomitant]
     Active Substance: CALCIUM CARBONATE\ETIDRONATE DISODIUM
  12. OXYGEN. [Concomitant]
     Active Substance: OXYGEN
     Dosage: 3 L, UNK
  13. PREDNISONE. [Concomitant]
     Active Substance: PREDNISONE
  14. DOMPERIDONE [Concomitant]
     Active Substance: DOMPERIDONE
  15. ATORVASTATIN [Concomitant]
     Active Substance: ATORVASTATIN
  16. ASPIRIN ENTERIC COATED K.P. [Concomitant]
     Active Substance: ASPIRIN

REACTIONS (5)
  - Lethargy [Not Recovered/Not Resolved]
  - Urinary tract infection [Recovered/Resolved]
  - Pleural effusion [Not Recovered/Not Resolved]
  - Mobility decreased [Not Recovered/Not Resolved]
  - Pallor [Not Recovered/Not Resolved]

NARRATIVE: CASE EVENT DATE: 201508
